FAERS Safety Report 4490257-3 (Version None)
Quarter: 2004Q4

REPORT INFORMATION
  Report Type: 
  Country: None (occurrence: None)
  Receive Date: 20041028
  Receipt Date: 20041015
  Transmission Date: 20050328
  Serious: Yes (Other)
  Sender: FDA-Public Use
  Company Number: 2004054655

PATIENT
  Age: 64 Year
  Sex: Female

DRUGS (4)
  1. ZOLOFT [Suspect]
     Indication: DEPRESSION
     Dosage: 25 MG (25 MG , 1 IN 1 D), ORAL
     Route: 048
     Dates: start: 20040805, end: 20040807
  2. DONEPEZIL HCL [Concomitant]
  3. LORAZEPAM [Concomitant]
  4. PREDNISONE [Concomitant]

REACTIONS (6)
  - ABNORMAL BEHAVIOUR [None]
  - COGNITIVE DISORDER [None]
  - CONDITION AGGRAVATED [None]
  - CONFUSIONAL STATE [None]
  - CRYING [None]
  - INCOHERENT [None]
